FAERS Safety Report 9836498 (Version 3)
Quarter: 2014Q1

REPORT INFORMATION
  Report Type: Spontaneous
  Country: US (occurrence: US)
  Receive Date: 20140123
  Receipt Date: 20140130
  Transmission Date: 20141002
  Serious: Yes (Hospitalization, Other)
  Sender: FDA-Public Use
  Company Number: US-BEH-2012031604

PATIENT
  Sex: Female
  Weight: 121 kg

DRUGS (14)
  1. HIZENTRA [Suspect]
     Indication: IMMUNODEFICIENCY COMMON VARIABLE
     Dosage: 4 GM ON 4 TO 8 SITES OVER 1 TO 2 HOURS
     Route: 058
     Dates: start: 20120309
  2. HIZENTRA [Suspect]
     Route: 058
     Dates: start: 20101122
  3. HIZENTRA [Suspect]
     Dosage: 4 GM 20 ML VIAL; DIVIDED WEEKLY 20 GM DOSE
     Route: 058
  4. DIPHENHYDRAMINE [Concomitant]
     Indication: PREMEDICATION
  5. EPI-PEN [Concomitant]
     Indication: PREMEDICATION
  6. SYMBICORT [Concomitant]
  7. OXYGEN [Concomitant]
  8. LUMIGAN [Concomitant]
  9. ALBUTEROL [Concomitant]
  10. VASOTEC [Concomitant]
  11. XOPENEX [Concomitant]
  12. SINGULAIR [Concomitant]
  13. LASIX [Concomitant]
  14. POTASSIUM CITRATE [Concomitant]

REACTIONS (2)
  - Renal failure [Unknown]
  - Infection [Not Recovered/Not Resolved]
